FAERS Safety Report 13230041 (Version 1)
Quarter: 2017Q1

REPORT INFORMATION
  Report Type: Spontaneous
  Country: US (occurrence: US)
  Receive Date: 20170213
  Receipt Date: 20170213
  Transmission Date: 20170428
  Serious: No
  Sender: FDA-Public Use
  Company Number: None

PATIENT
  Age: 74 Year
  Sex: Male
  Weight: 100.8 kg

DRUGS (1)
  1. NAFCILLIN [Suspect]
     Active Substance: NAFCILLIN\NAFCILLIN SODIUM
     Indication: STAPHYLOCOCCAL INFECTION
     Dosage: ?          OTHER FREQUENCY:Q4H;?
     Route: 042
     Dates: start: 20170203, end: 20170206

REACTIONS (1)
  - Blood sodium increased [None]

NARRATIVE: CASE EVENT DATE: 20170206
